FAERS Safety Report 7065557-3 (Version None)
Quarter: 2010Q4

REPORT INFORMATION
  Report Type: 
  Country: None (occurrence: None)
  Receive Date: 20101019
  Receipt Date: 20100815
  Transmission Date: 20110411
  Serious: Yes (Other)
  Sender: FDA-Public Use
  Company Number: US-1183054

PATIENT
  Sex: Male
  Weight: 68.9467 kg

DRUGS (10)
  1. NEVANAC [Suspect]
     Indication: RETINAL OEDEMA
     Dosage: (1 GTT TID OD OPHTHALMIC)
     Route: 047
     Dates: start: 20100811, end: 20100813
  2. PRED FORTE [Concomitant]
  3. TIMOPTIC [Concomitant]
  4. BRIMONIDINE TARTRATE [Concomitant]
  5. ARTIFICIAL TEARS [Concomitant]
  6. PROZAC [Concomitant]
  7. POTASSIUM CHLORIDE [Concomitant]
  8. ASPIRIN [Concomitant]
  9. OMEPRAZOLE [Concomitant]
  10. CALCIUM [Concomitant]

REACTIONS (4)
  - CORNEAL OEDEMA [None]
  - EYE IRRITATION [None]
  - TRANSPLANT FAILURE [None]
  - VISUAL ACUITY REDUCED [None]
